FAERS Safety Report 22180627 (Version 1)
Quarter: 2023Q2

REPORT INFORMATION
  Report Type: Spontaneous
  Country: US (occurrence: None)
  Receive Date: 20230405
  Receipt Date: 20230405
  Transmission Date: 20230722
  Serious: No
  Sender: FDA-Public Use
  Company Number: None

PATIENT
  Age: 69 Year
  Sex: Female

DRUGS (1)
  1. COSENTYX [Suspect]
     Active Substance: SECUKINUMAB
     Indication: Psoriatic arthropathy
     Dosage: INJECT 150MG (1 PEN) SUBCUTANEOUSLY EVERY 4 WEEKS AS DIRECTED    ?
     Route: 058
     Dates: start: 202211

REACTIONS (2)
  - Cough [None]
  - Infection [None]
